FAERS Safety Report 7790479-X (Version None)
Quarter: 2011Q3

REPORT INFORMATION
  Report Type: 
  Country: None (occurrence: None)
  Receive Date: 20110930
  Receipt Date: 20110919
  Transmission Date: 20111222
  Serious: Yes (Other)
  Sender: FDA-Public Use
  Company Number: PHHY2011DE83896

PATIENT
  Sex: Male

DRUGS (1)
  1. RASILEZ HCT [Suspect]
     Dosage: 1 DF, UNK
     Route: 048
     Dates: start: 20110101

REACTIONS (2)
  - GINGIVITIS [None]
  - GINGIVAL ABSCESS [None]
